FAERS Safety Report 7772457-X (Version None)
Quarter: 2011Q3

REPORT INFORMATION
  Report Type: 
  Country: None (occurrence: None)
  Receive Date: 20110922
  Receipt Date: 20110915
  Transmission Date: 20111222
  Serious: Yes (Other)
  Sender: FDA-Public Use
  Company Number: PHHY2011GB82108

PATIENT
  Age: 9 Year
  Sex: Male

DRUGS (4)
  1. ENBREL [Suspect]
     Dosage: 9.5 MG TWICE A WEEK
     Route: 058
     Dates: start: 20080601, end: 20090901
  2. METHOTREXATE [Suspect]
     Dosage: UNK UKN, UNK
  3. ENBREL [Suspect]
     Dosage: UNK UKN, UNK
     Dates: start: 20101009
  4. CORTICOSTEROIDS [Suspect]
     Dosage: UNK UKN, UNK

REACTIONS (5)
  - RASH MACULAR [None]
  - MOOD ALTERED [None]
  - SLEEP TERROR [None]
  - NAUSEA [None]
  - URTICARIA [None]
